FAERS Safety Report 9143709 (Version 1)
Quarter: 2013Q1

REPORT INFORMATION
  Report Type: Spontaneous
  Country: IL (occurrence: IL)
  Receive Date: 20130306
  Receipt Date: 20130306
  Transmission Date: 20140127
  Serious: Yes (Hospitalization, Other)
  Sender: FDA-Public Use
  Company Number: IL-ROCHE-1197762

PATIENT
  Age: 45 Year
  Sex: Male

DRUGS (3)
  1. BEVACIZUMAB [Suspect]
     Indication: COLON CANCER METASTATIC
     Route: 065
  2. XELODA [Suspect]
     Indication: COLON CANCER METASTATIC
     Route: 065
  3. IRINOTECAN [Suspect]
     Indication: COLON CANCER METASTATIC
     Route: 065

REACTIONS (1)
  - Disease progression [Unknown]
